FAERS Safety Report 9068285 (Version 2)
Quarter: 2013Q3

REPORT INFORMATION
  Report Type: Spontaneous
  Country: GB (occurrence: GB)
  Receive Date: 20130128
  Receipt Date: 20130801
  Transmission Date: 20140515
  Serious: Yes (Hospitalization)
  Sender: FDA-Public Use
  Company Number: GB-PFIZER INC-2013033293

PATIENT
  Age: 70 Year
  Sex: Male

DRUGS (8)
  1. PREGABALIN [Suspect]
     Indication: PAIN
     Dosage: 75 MG, 2X/DAY
     Dates: end: 20130124
  2. OMEPRAZOLE [Concomitant]
  3. AMLODIPINE [Concomitant]
  4. ATORVASTATIN [Concomitant]
  5. GLICLAZIDE [Concomitant]
  6. TAMSULOSIN [Concomitant]
  7. PARACETAMOL [Concomitant]
  8. METFORMIN [Concomitant]

REACTIONS (2)
  - Neutropenia [Recovered/Resolved]
  - White blood cell count decreased [Recovered/Resolved]
